FAERS Safety Report 5208815-7 (Version None)
Quarter: 2007Q1

REPORT INFORMATION
  Report Type: 
  Country: None (occurrence: None)
  Receive Date: 20070116
  Receipt Date: 20070109
  Transmission Date: 20070707
  Serious: Yes (Death, Hospitalization)
  Sender: FDA-Public Use
  Company Number: DE-ELI_LILLY_AND_COMPANY-DE200701002016

PATIENT
  Age: 60 Year
  Sex: Female
  Weight: 40 kg

DRUGS (1)
  1. XIGRIS [Suspect]
     Indication: SEPSIS
     Dates: end: 20070101

REACTIONS (2)
  - COAGULATION FACTOR DECREASED [None]
  - PERITONITIS [None]
